FAERS Safety Report 4423570-6 (Version None)
Quarter: 2004Q3

REPORT INFORMATION
  Report Type: 
  Country: None (occurrence: None)
  Receive Date: 20040811
  Receipt Date: 20040722
  Transmission Date: 20050211
  Serious: Yes (Other)
  Sender: FDA-Public Use
  Company Number: PHBS2004BE09817

PATIENT
  Age: 70 Year
  Sex: Female

DRUGS (4)
  1. ZOMETA [Suspect]
     Dosage: 4 MG MONTHLY
     Route: 042
     Dates: start: 20021001, end: 20040701
  2. VESPESID [Concomitant]
     Route: 065
     Dates: start: 20021101
  3. MELPHALAN [Concomitant]
     Dosage: 200 MG/M2/D
     Route: 065
  4. THALIDOMIDE [Concomitant]
     Route: 065

REACTIONS (3)
  - OSTEOMYELITIS [None]
  - OSTEONECROSIS [None]
  - PAIN IN JAW [None]
